FAERS Safety Report 19210310 (Version 2)
Quarter: 2021Q2

REPORT INFORMATION
  Report Type: Spontaneous
  Country: US (occurrence: US)
  Receive Date: 20210504
  Receipt Date: 20210510
  Transmission Date: 20210717
  Serious: No
  Sender: FDA-Public Use
  Company Number: US-TEVA-2021-US-1905159

PATIENT
  Age: 30 Year
  Sex: Male
  Weight: 54.43 kg

DRUGS (4)
  1. PROAIR HFA [Suspect]
     Active Substance: ALBUTEROL SULFATE
     Indication: DYSPNOEA
     Dosage: TWO TIMES AT NIGHT AND TWO TIMES IN THE MORNING
     Route: 065
     Dates: start: 2014
  2. PREDNISOLONE. [Concomitant]
     Active Substance: PREDNISOLONE
  3. SYMBICORT [Concomitant]
     Active Substance: BUDESONIDE\FORMOTEROL FUMARATE DIHYDRATE
     Dosage: ONCE A DAY
  4. SINGULAIR [Concomitant]
     Active Substance: MONTELUKAST SODIUM

REACTIONS (6)
  - Disorientation [Unknown]
  - Drug hypersensitivity [Unknown]
  - Product taste abnormal [Unknown]
  - Pharyngeal swelling [Unknown]
  - Headache [Unknown]
  - Feeling abnormal [Unknown]

NARRATIVE: CASE EVENT DATE: 202104
